FAERS Safety Report 4331419-5 (Version None)
Quarter: 2004Q2

REPORT INFORMATION
  Report Type: 
  Country: None (occurrence: None)
  Receive Date: 20040402
  Receipt Date: 20040402
  Transmission Date: 20050107
  Serious: Yes (Disabling, Congenital Anomaly)
  Sender: FDA-Public Use
  Company Number: None

PATIENT
  Age: 35 Year
  Sex: Male
  Weight: 80.2867 kg

DRUGS (2)
  1. DEPO-MEDROL [Suspect]
     Indication: INTERVERTEBRAL DISC DISORDER
     Dosage: 60 ML 1X EPIDURAL
     Route: 008
     Dates: start: 20031024, end: 20031024
  2. DEPO-MEDROL [Suspect]
     Indication: SCIATICA
     Dosage: 60 ML 1X EPIDURAL
     Route: 008
     Dates: start: 20031024, end: 20031024

REACTIONS (4)
  - BLADDER DISORDER [None]
  - DYSURIA [None]
  - URETHRITIS [None]
  - URINARY RETENTION [None]
